FAERS Safety Report 13739041 (Version 2)
Quarter: 2024Q3

REPORT INFORMATION
  Report Type: Spontaneous
  Country: US (occurrence: US)
  Receive Date: 20170710
  Receipt Date: 20240806
  Transmission Date: 20241017
  Serious: Yes (Hospitalization, Other)
  Sender: AMNEAL
  Company Number: US-SAOL THERAPEUTICS-2017SAO00676

PATIENT
  Age: 20 Year
  Sex: Male

DRUGS (2)
  1. BACLOFEN [Suspect]
     Active Substance: BACLOFEN
     Indication: Cerebral palsy
     Dosage: 771.6 MICROGRAM, DAILY
     Route: 037
     Dates: start: 20170315
  2. BACLOFEN [Suspect]
     Active Substance: BACLOFEN
     Indication: Muscle spasticity
     Dosage: 626.6 MICROGRAM, DAILY
     Route: 037

REACTIONS (3)
  - Drug withdrawal syndrome [Unknown]
  - Seizure [Not Recovered/Not Resolved]
  - Device failure [Recovered/Resolved]

NARRATIVE: CASE EVENT DATE: 20170402
